FAERS Safety Report 10173944 (Version 2)
Quarter: 2014Q3

REPORT INFORMATION
  Report Type: Spontaneous
  Country: US (occurrence: US)
  Receive Date: 20140515
  Receipt Date: 20140701
  Transmission Date: 20150326
  Serious: Yes (Death)
  Sender: FDA-Public Use
  Company Number: US-BAYER-2014-071285

PATIENT
  Age: 66 Year
  Sex: Male
  Weight: 180.8 kg

DRUGS (3)
  1. SINEMET [Concomitant]
     Active Substance: CARBIDOPA\LEVODOPA
     Dosage: DOUBLED THE DOSE
  2. SINEMET [Concomitant]
     Active Substance: CARBIDOPA\LEVODOPA
  3. XOFIGO [Suspect]
     Active Substance: RADIUM RA-223 DICHLORIDE
     Indication: PROSTATE CANCER METASTATIC
     Dosage: DOSE REGIMEN: 50 KBQ/KG
     Route: 042

REACTIONS (1)
  - Parkinson^s disease [Fatal]
